FAERS Safety Report 11871298 (Version 4)
Quarter: 2016Q1

REPORT INFORMATION
  Report Type: Spontaneous
  Country: None (occurrence: JP)
  Receive Date: 20151228
  Receipt Date: 20160115
  Transmission Date: 20160526
  Serious: Yes (Hospitalization, Other)
  Sender: FDA-Public Use
  Company Number: JP-MEDTRONIC-1045918

PATIENT
  Sex: Female

DRUGS (1)
  1. GABALON INTRATHECAL [Suspect]
     Active Substance: BACLOFEN
     Route: 037
     Dates: start: 20151030

REACTIONS (6)
  - Computerised tomogram abnormal [Unknown]
  - Implant site swelling [Unknown]
  - Cerebrospinal fluid leakage [Unknown]
  - Implant site extravasation [Unknown]
  - Hyperaemia [Unknown]
  - Device dislocation [None]

NARRATIVE: CASE EVENT DATE: 20151201
